FAERS Safety Report 4824401-2 (Version None)
Quarter: 2005Q4

REPORT INFORMATION
  Report Type: 
  Country: None (occurrence: None)
  Receive Date: 20051108
  Receipt Date: 20051024
  Transmission Date: 20060501
  Serious: Yes (Death)
  Sender: FDA-Public Use
  Company Number: 200509356

PATIENT
  Age: 81 Year
  Sex: Female
  Weight: 65.7716 kg

DRUGS (7)
  1. ALPHAGAN P [Suspect]
     Indication: GLAUCOMA
     Dosage: 2 DROPS BID EYE
     Dates: start: 20050901, end: 20050915
  2. ALPHAGAN P [Suspect]
     Indication: GLAUCOMA
     Dosage: 2 DROPS BID EYE
     Dates: start: 20050816, end: 20050901
  3. TRAVATAN [Concomitant]
  4. ZETIA [Concomitant]
  5. ATENOLOL [Concomitant]
  6. FOSAMAX [Concomitant]
  7. ESTRACE [Concomitant]

REACTIONS (5)
  - CONDITION AGGRAVATED [None]
  - HYPERTENSION [None]
  - LOSS OF CONSCIOUSNESS [None]
  - MYOCARDIAL INFARCTION [None]
  - RESUSCITATION [None]
